FAERS Safety Report 4968152-2 (Version None)
Quarter: 2006Q1

REPORT INFORMATION
  Report Type: 
  Country: None (occurrence: None)
  Receive Date: 20060201
  Receipt Date: 20051005
  Transmission Date: 20060701
  Serious: No
  Sender: FDA-Public Use
  Company Number: 2005PV002995

PATIENT
  Age: 59 Year
  Sex: Male
  Weight: 136.0791 kg

DRUGS (24)
  1. BYETTA [Suspect]
     Indication: DIABETES MELLITUS NON-INSULIN-DEPENDENT
     Dosage: SEE IMAGE
     Dates: start: 20051001, end: 20051030
  2. BYETTA [Suspect]
     Indication: DIABETES MELLITUS NON-INSULIN-DEPENDENT
     Dosage: SEE IMAGE
     Dates: start: 20051031, end: 20051105
  3. BYETTA [Suspect]
     Indication: DIABETES MELLITUS NON-INSULIN-DEPENDENT
     Dosage: SEE IMAGE
     Dates: start: 20051105
  4. TOPAMAX [Suspect]
     Indication: NEURALGIA
     Dosage: SEE IMAGE
     Dates: start: 20050901, end: 20050101
  5. TOPAMAX [Suspect]
     Indication: NEURALGIA
     Dosage: SEE IMAGE
     Dates: start: 20051001
  6. GLUCOPHAGE [Concomitant]
  7. NEURONTIN [Concomitant]
  8. ASPIRIN [Concomitant]
  9. COZAAR [Concomitant]
  10. NORVASC [Concomitant]
  11. CYMBALTA [Concomitant]
  12. SEROQUEL [Concomitant]
  13. FLURAZEPAM [Concomitant]
  14. PROSCAR [Concomitant]
  15. COREG [Concomitant]
  16. LASIX [Concomitant]
  17. POTASSIUM [Concomitant]
  18. FLOMAX [Concomitant]
  19. NEXIUM [Concomitant]
  20. ZOCOR [Concomitant]
  21. SPIRIVA [Concomitant]
  22. INSULIN [Concomitant]
  23. ALBUTEROL [Concomitant]
  24. CLORAZAPAM [Concomitant]

REACTIONS (9)
  - ASTHENIA [None]
  - CONSTIPATION [None]
  - DECREASED APPETITE [None]
  - DIZZINESS [None]
  - DYSPEPSIA [None]
  - FLATULENCE [None]
  - NAUSEA [None]
  - PAIN [None]
  - WEIGHT DECREASED [None]
